FAERS Safety Report 23114527 (Version 1)
Quarter: 2023Q4

REPORT INFORMATION
  Report Type: Report from Study
  Country: US (occurrence: US)
  Receive Date: 20231027
  Receipt Date: 20231027
  Transmission Date: 20240110
  Serious: Yes (Hospitalization)
  Sender: FDA-Public Use
  Company Number: US-ORPHANEU-2023007417

PATIENT

DRUGS (14)
  1. CYSTADROPS [Suspect]
     Active Substance: CYSTEAMINE HYDROCHLORIDE
     Indication: Cystinosis
     Dosage: 2 GTT DROPS, QID
     Route: 047
     Dates: end: 2023
  2. CYSTADROPS [Suspect]
     Active Substance: CYSTEAMINE HYDROCHLORIDE
     Dosage: 2 GTT DROPS, QID
     Route: 047
     Dates: start: 20230616
  3. CARVEDILOL [Concomitant]
     Active Substance: CARVEDILOL
     Indication: Product used for unknown indication
  4. CELLCEPT [Concomitant]
     Active Substance: MYCOPHENOLATE MOFETIL
     Indication: Product used for unknown indication
  5. CYSTAGON [Concomitant]
     Active Substance: CYSTEAMINE BITARTRATE
     Indication: Product used for unknown indication
  6. FLONASE [Concomitant]
     Active Substance: FLUTICASONE PROPIONATE
     Indication: Product used for unknown indication
  7. FUROSEMIDE SODIUM [Concomitant]
     Active Substance: FUROSEMIDE SODIUM
     Indication: Product used for unknown indication
  8. JARDIANCE [Concomitant]
     Active Substance: EMPAGLIFLOZIN
     Indication: Product used for unknown indication
  9. MAGNESIUM OXIDE [Concomitant]
     Active Substance: MAGNESIUM OXIDE
     Indication: Product used for unknown indication
  10. POTASSIUM CHLORIDE [Concomitant]
     Active Substance: POTASSIUM CHLORIDE
     Indication: Product used for unknown indication
  11. PREDNISONE [Concomitant]
     Active Substance: PREDNISONE
     Indication: Product used for unknown indication
  12. PROGRAF [Concomitant]
     Active Substance: TACROLIMUS
     Indication: Product used for unknown indication
  13. WALSARTAN [Concomitant]
     Indication: Product used for unknown indication
  14. ZYRTEC [Concomitant]
     Active Substance: CETIRIZINE HYDROCHLORIDE
     Indication: Product used for unknown indication

REACTIONS (1)
  - Loss of consciousness [Unknown]

NARRATIVE: CASE EVENT DATE: 20231012
